FAERS Safety Report 23194525 (Version 1)
Quarter: 2023Q4

REPORT INFORMATION
  Report Type: Spontaneous
  Country: US (occurrence: US)
  Receive Date: 20231117
  Receipt Date: 20231117
  Transmission Date: 20240109
  Serious: Yes (Other)
  Sender: FDA-Public Use
  Company Number: US-SANDOZ-SDZ2023US054623

PATIENT
  Age: 64 Year
  Sex: Male

DRUGS (1)
  1. METHYLPREDNISOLONE [Suspect]
     Active Substance: METHYLPREDNISOLONE
     Indication: Endocrine ophthalmopathy
     Route: 065

REACTIONS (4)
  - Optic neuropathy [Not Recovered/Not Resolved]
  - Strabismus [Not Recovered/Not Resolved]
  - Exophthalmos [Not Recovered/Not Resolved]
  - Product use in unapproved indication [Unknown]
